FAERS Safety Report 4919857-0 (Version None)
Quarter: 2006Q1

REPORT INFORMATION
  Report Type: 
  Country: None (occurrence: None)
  Receive Date: 20060217
  Receipt Date: 20060208
  Transmission Date: 20060701
  Serious: Yes (Other)
  Sender: FDA-Public Use
  Company Number: 2006019879

PATIENT
  Age: 65 Year
  Sex: Female
  Weight: 52.1637 kg

DRUGS (2)
  1. LIPITOR [Suspect]
     Indication: BLOOD CHOLESTEROL INCREASED
     Dosage: 10 MG (10 MG, QD INTERVAL: EVERY DAY), ORAL
     Route: 048
     Dates: start: 20030101
  2. ATIVAN [Concomitant]

REACTIONS (3)
  - ALOPECIA [None]
  - DIVERTICULUM [None]
  - POST PROCEDURAL COMPLICATION [None]
